FAERS Safety Report 25116253 (Version 1)
Quarter: 2025Q1

REPORT INFORMATION
  Report Type: Report from Study
  Country: CO (occurrence: CO)
  Receive Date: 20250325
  Receipt Date: 20250325
  Transmission Date: 20250408
  Serious: Yes (Death, Hospitalization, Other)
  Sender: BIOVITRUM
  Company Number: CO-AstraZeneca-CH-00830602A

PATIENT
  Age: 7 Month
  Sex: Female
  Weight: 4.04 kg

DRUGS (1)
  1. PALIVIZUMAB [Suspect]
     Active Substance: PALIVIZUMAB
     Indication: Antiviral prophylaxis
     Route: 030
     Dates: start: 20241023

REACTIONS (7)
  - Death [Fatal]
  - Pleural effusion [Fatal]
  - Endocarditis [Fatal]
  - Respiratory failure [Fatal]
  - Multiple organ dysfunction syndrome [Fatal]
  - Thrombosis [Fatal]
  - Septic shock [Fatal]

NARRATIVE: CASE EVENT DATE: 20250302
